FAERS Safety Report 17733849 (Version 1)
Quarter: 2020Q2

REPORT INFORMATION
  Report Type: Spontaneous
  Country: US (occurrence: US)
  Receive Date: 20200501
  Receipt Date: 20200501
  Transmission Date: 20200714
  Serious: Yes (Hospitalization, Other)
  Sender: FDA-Public Use
  Company Number: US-MYLANLABS-2020M1042543

PATIENT
  Age: 48 Year
  Sex: Female

DRUGS (11)
  1. PHENAZOPYRIDINE. [Concomitant]
     Active Substance: PHENAZOPYRIDINE
     Indication: BK VIRUS INFECTION
     Dosage: UNK
     Route: 065
  2. CIDOFOVIR. [Suspect]
     Active Substance: CIDOFOVIR
     Indication: ADENOVIRUS INFECTION
     Dosage: 5 MILLIGRAM/KILOGRAM, QW
     Route: 065
  3. ANTITHYMOCYTE IMMUNOGLOBULIN [Suspect]
     Active Substance: THYMOCYTE IMMUNE GLOBULIN NOS
     Indication: BONE MARROW CONDITIONING REGIMEN
     Dosage: UNK
     Route: 065
     Dates: start: 201811
  4. BUDESONIDE. [Concomitant]
     Active Substance: BUDESONIDE
     Indication: GRAFT VERSUS HOST DISEASE
     Dosage: FORMULATION: OIL
     Route: 065
  5. LOPERAMIDE [Suspect]
     Active Substance: LOPERAMIDE
     Indication: DIARRHOEA
     Dosage: UNK
     Route: 065
  6. CARMUSTINE. [Suspect]
     Active Substance: CARMUSTINE
     Indication: BONE MARROW CONDITIONING REGIMEN
     Dosage: AS PART OF CONDITIONING REGIMEN
     Route: 065
     Dates: start: 201811
  7. CYTARABINE. [Suspect]
     Active Substance: CYTARABINE
     Indication: BONE MARROW CONDITIONING REGIMEN
     Dosage: UNK, AS PART OF CONDITIONING REGIMEN
     Route: 065
     Dates: start: 201811
  8. BECLOMETHASONE                     /00212601/ [Concomitant]
     Active Substance: BECLOMETHASONE
     Indication: GRAFT VERSUS HOST DISEASE
     Dosage: UNK, FORMULATION: OIL
     Route: 065
  9. ETOPOSIDE. [Suspect]
     Active Substance: ETOPOSIDE
     Indication: BONE MARROW CONDITIONING REGIMEN
     Dosage: AS PART OF CONDITIONING REGIMEN
     Route: 065
     Dates: start: 201811
  10. MELPHALAN. [Suspect]
     Active Substance: MELPHALAN
     Indication: BONE MARROW CONDITIONING REGIMEN
     Dosage: UNK, AS PART OF CONDITIONING REGIMEN
     Route: 065
     Dates: start: 201811
  11. RIBAVIRIN. [Concomitant]
     Active Substance: RIBAVIRIN
     Indication: RESPIRATORY SYNCYTIAL VIRUS INFECTION
     Dosage: UNK
     Route: 048

REACTIONS (12)
  - Adenovirus infection [Recovered/Resolved]
  - BK virus infection [Unknown]
  - Nausea [Recovered/Resolved]
  - Drug ineffective [Unknown]
  - Gastroenteritis adenovirus [Recovered/Resolved]
  - Lymphopenia [Unknown]
  - Viral haemorrhagic cystitis [Unknown]
  - Vomiting [Recovered/Resolved]
  - Diarrhoea [Recovered/Resolved]
  - Respiratory syncytial virus infection [Unknown]
  - Thrombocytopenia [Unknown]
  - Anaemia [Unknown]
